FAERS Safety Report 17982983 (Version 1)
Quarter: 2020Q3

REPORT INFORMATION
  Report Type: Spontaneous
  Country: US (occurrence: US)
  Receive Date: 20200703
  Receipt Date: 20200703
  Transmission Date: 20201103
  Serious: Yes (Disabling)
  Sender: FDA-Public Use
  Company Number: None

PATIENT
  Age: 25 Year
  Sex: Male
  Weight: 74.25 kg

DRUGS (1)
  1. CLARAVIS [Suspect]
     Active Substance: ISOTRETINOIN
     Indication: ACNE
     Dosage: ?          QUANTITY:1 CAPSULE(S);?
     Route: 048
     Dates: start: 20181212, end: 20181214

REACTIONS (8)
  - Anxiety [None]
  - Depression [None]
  - Sexual dysfunction [None]
  - Nasopharyngitis [None]
  - Impaired driving ability [None]
  - Dizziness [None]
  - Nervousness [None]
  - Syncope [None]

NARRATIVE: CASE EVENT DATE: 20181214
